FAERS Safety Report 22320991 (Version 2)
Quarter: 2023Q2

REPORT INFORMATION
  Report Type: Spontaneous
  Country: DE (occurrence: DE)
  Receive Date: 20230515
  Receipt Date: 20230608
  Transmission Date: 20230722
  Serious: Yes (Hospitalization)
  Sender: FDA-Public Use
  Company Number: DE-ABBVIE-4764211

PATIENT
  Age: 65 Year
  Sex: Male
  Weight: 77 kg

DRUGS (15)
  1. HUMIRA [Suspect]
     Active Substance: ADALIMUMAB
     Indication: Colitis ulcerative
     Dosage: FORM STRENGTH: 40 MILLIGRAM
     Route: 058
     Dates: start: 2011, end: 20230427
  2. METOPROLOL [Concomitant]
     Active Substance: METOPROLOL
     Indication: Product used for unknown indication
     Dosage: 1-0-1
  3. LATANOPROST\TIMOLOL MALEATE [Concomitant]
     Active Substance: LATANOPROST\TIMOLOL MALEATE
     Indication: Product used for unknown indication
     Dosage: EYE DROPS
  4. TORSEMIDE [Concomitant]
     Active Substance: TORSEMIDE
     Indication: Product used for unknown indication
     Dosage: 1-0-0
  5. CHOLECALCIFEROL [Concomitant]
     Active Substance: CHOLECALCIFEROL
     Indication: Product used for unknown indication
     Dosage: 20 000
  6. Pyridostigmin [Concomitant]
     Indication: Myasthenia gravis
     Dosage: 1-1-1-1
  7. ASPIRIN [Concomitant]
     Active Substance: ASPIRIN
     Indication: Product used for unknown indication
     Dosage: 1-0-0
  8. ROSUVASTATIN [Concomitant]
     Active Substance: ROSUVASTATIN
     Indication: Product used for unknown indication
     Dosage: 0-0-1
  9. ALLOPURINOL [Concomitant]
     Active Substance: ALLOPURINOL
     Indication: Product used for unknown indication
     Dosage: 0-1-0
  10. Salofalk [Concomitant]
     Indication: Colitis ulcerative
     Route: 048
     Dates: start: 202208
  11. Salofalk [Concomitant]
     Indication: Colitis ulcerative
  12. PANTOPRAZOLE SODIUM [Concomitant]
     Active Substance: PANTOPRAZOLE SODIUM
     Indication: Product used for unknown indication
     Dosage: 1-0-0
  13. GLIMEPIRIDE [Concomitant]
     Active Substance: GLIMEPIRIDE
     Indication: Product used for unknown indication
     Dosage: 1-0-0
  14. FOLIC ACID [Concomitant]
     Active Substance: FOLIC ACID
     Indication: Product used for unknown indication
  15. PREDNISOLONE [Concomitant]
     Active Substance: PREDNISOLONE
     Indication: Colitis ulcerative
     Dates: end: 202301

REACTIONS (10)
  - Myasthenia gravis [Not Recovered/Not Resolved]
  - Abdominal pain upper [Unknown]
  - Eyelid ptosis [Recovering/Resolving]
  - Muscular weakness [Unknown]
  - Glucose tolerance impaired [Unknown]
  - Myalgia [Unknown]
  - Tremor [Not Recovered/Not Resolved]
  - Fluid intake reduced [Unknown]
  - Gait disturbance [Recovering/Resolving]
  - Polyneuropathy [Unknown]

NARRATIVE: CASE EVENT DATE: 20230101
